FAERS Safety Report 16924893 (Version 1)
Quarter: 2019Q4

REPORT INFORMATION
  Report Type: Spontaneous
  Country: US (occurrence: US)
  Receive Date: 20191016
  Receipt Date: 20191016
  Transmission Date: 20200122
  Serious: No
  Sender: FDA-Public Use
  Company Number: US-PFIZER INC-2019443162

PATIENT
  Age: 56 Year
  Sex: Female
  Weight: 71.6 kg

DRUGS (1)
  1. LYRICA [Suspect]
     Active Substance: PREGABALIN
     Indication: MYALGIA
     Dosage: 200 MG, 3X/DAY

REACTIONS (3)
  - Eye disorder [Unknown]
  - Product use in unapproved indication [Unknown]
  - Off label use [Unknown]
